FAERS Safety Report 5058362-0 (Version None)
Quarter: 2006Q2

REPORT INFORMATION
  Report Type: 
  Country: None (occurrence: None)
  Receive Date: 20060628
  Receipt Date: 20051209
  Transmission Date: 20061013
  Serious: Yes (Other)
  Sender: FDA-Public Use
  Company Number: 428406

PATIENT
  Age: 19 Year
  Sex: Male

DRUGS (1)
  1. CLONAZEPAM [Suspect]
     Indication: AFFECTIVE DISORDER
     Dosage: 2 MG DAILY

REACTIONS (2)
  - AGITATION [None]
  - DISINHIBITION [None]
